FAERS Safety Report 8613648-5 (Version None)
Quarter: 2012Q3

REPORT INFORMATION
  Report Type: 
  Country: None (occurrence: None)
  Receive Date: 20120823
  Receipt Date: 20120814
  Transmission Date: 20120928
  Serious: Yes (Hospitalization)
  Sender: FDA-Public Use
  Company Number: IT-BRISTOL-MYERS SQUIBB COMPANY-16856403

PATIENT
  Age: 65 Year
  Sex: Male

DRUGS (5)
  1. IBUPROFEN [Suspect]
     Indication: BACK PAIN
     Dosage: 1DF= 1DOSE
     Route: 048
     Dates: start: 20120721, end: 20120728
  2. ALLOPURINOL [Concomitant]
     Indication: HYPERURICAEMIA
  3. SCOPOLAMINE [Suspect]
     Indication: ABDOMINAL PAIN
     Dosage: BUSCOPAN 20 MG/ML. 1DF=1 DOSE
     Route: 030
     Dates: start: 20120721, end: 20120728
  4. PENTACOL [Concomitant]
     Dosage: TABS
  5. COUMADIN [Suspect]
     Indication: FACTOR V LEIDEN MUTATION
     Dosage: 1DF= 1DOSE
     Route: 048
     Dates: start: 20080101, end: 20120728

REACTIONS (4)
  - DUODENAL ULCER [None]
  - ANAEMIA [None]
  - RECTAL HAEMORRHAGE [None]
  - HAEMATURIA [None]
